FAERS Safety Report 8168823-3 (Version None)
Quarter: 2012Q1

REPORT INFORMATION
  Report Type: 
  Country: None (occurrence: None)
  Receive Date: 20120222
  Receipt Date: 20120208
  Transmission Date: 20120608
  Serious: Yes (Hospitalization)
  Sender: FDA-Public Use
  Company Number: 1000027429

PATIENT
  Age: 88 Year
  Sex: Male

DRUGS (11)
  1. TAMSULOSIN (TAMSULOSIN) (TAMSULOSIN) [Concomitant]
  2. LEVOTHYROXINE (LEVOTHYROXINE SODIUM) (LEVOTHYROXINE SODIUM) [Concomitant]
  3. ENALAPRIL/ HYDROCHLOROTHIAZIDE (ENALAPRIL, HYDROCHLOROTHIAZIDE) (ENALA [Concomitant]
  4. CITALOPRAM HYDROBROMIDE [Suspect]
     Indication: DEPRESSION
     Dosage: 30 MG (30 MG, 1 IN 1 D), ORAL
     Route: 048
  5. SIMVASTATIN [Concomitant]
  6. BROMAZEPAM (BROMAZEPAM) (BROMAZEPAM) [Concomitant]
  7. ATENOLOL [Concomitant]
  8. OMEPRAZOLE [Concomitant]
  9. ACETYLSALICYLIC ACID SRT [Concomitant]
  10. NITROGLYCERIN (GLYCERYL TRINITRATE) (POULTICE OR PATCH) (GLYCERYL TRIN [Concomitant]
  11. SERTRALINE HYDROCHLORIDE [Concomitant]

REACTIONS (7)
  - CEREBRAL ATROPHY [None]
  - HYPONATRAEMIA [None]
  - CENTRAL NERVOUS SYSTEM LESION [None]
  - DIZZINESS [None]
  - MALAISE [None]
  - MUSCULAR WEAKNESS [None]
  - INAPPROPRIATE ANTIDIURETIC HORMONE SECRETION [None]
